FAERS Safety Report 8791455 (Version 2)
Quarter: 2012Q4

REPORT INFORMATION
  Report Type: Spontaneous
  Country: US (occurrence: None)
  Receive Date: 20120912
  Receipt Date: 20121121
  Transmission Date: 20130627
  Serious: Yes (Hospitalization)
  Sender: FDA-Public Use
  Company Number: LMI-2012-00268

PATIENT
  Age: 91 Year
  Sex: Female
  Weight: 113.4 kg

DRUGS (18)
  1. DEFINITY [Suspect]
     Indication: TRANSTHORACIC ECHOCARDIOGRAM
     Route: 040
     Dates: start: 20120809, end: 20120809
  2. DEFINITY [Suspect]
     Indication: CONGESTIVE HEART FAILURE
     Route: 040
     Dates: start: 20120809, end: 20120809
  3. DEFINITY [Suspect]
     Indication: TRANSTHORACIC ECHOCARDIOGRAM
     Route: 040
     Dates: start: 20120809, end: 20120809
  4. DEFINITY [Suspect]
     Indication: CONGESTIVE HEART FAILURE
     Route: 040
     Dates: start: 20120809, end: 20120809
  5. DEFINITY [Suspect]
     Indication: TRANSTHORACIC ECHOCARDIOGRAM
     Route: 040
     Dates: start: 20120809, end: 20120809
  6. DEFINITY [Suspect]
     Indication: CONGESTIVE HEART FAILURE
     Route: 040
     Dates: start: 20120809, end: 20120809
  7. DEFINITY [Suspect]
     Indication: TRANSTHORACIC ECHOCARDIOGRAM
     Route: 040
     Dates: start: 20120809, end: 20120809
  8. DEFINITY [Suspect]
     Indication: CONGESTIVE HEART FAILURE
     Route: 040
     Dates: start: 20120809, end: 20120809
  9. CYANOCOBALAMIN (CYANOCOBALAMIN) [Concomitant]
  10. EC-ASA (ACETYLSALICYLIC ACID) [Concomitant]
  11. COLACE (DOCUSATE SODIUM) [Concomitant]
  12. TEKTURNA HCT (HYDROCHLOROTHIAZIDE, ALISKIREN FUMARATE) [Concomitant]
  13. POTASSIUM (POTASSIUM) [Concomitant]
  14. LASIX (FUROSEMIDE) [Concomitant]
  15. TIMOPTIC (TIMOLOL MALEATE) [Concomitant]
  16. ALPHAGEN (BRIMONIDINE TARTRATE) [Concomitant]
  17. MACROBID (NITROFURANTOIN) [Concomitant]
  18. OMEPRAZOLE (OMEPRAZOLE) [Concomitant]

REACTIONS (3)
  - Dyspnoea [None]
  - Oxygen saturation decreased [None]
  - Anxiety [None]
